FAERS Safety Report 10497327 (Version 2)
Quarter: 2015Q2

REPORT INFORMATION
  Report Type: Report from Study
  Country: GB (occurrence: GB)
  Receive Date: 20141006
  Receipt Date: 20150514
  Transmission Date: 20150821
  Serious: Yes (Other)
  Sender: FDA-Public Use
  Company Number: GB-ROCHE-1468100

PATIENT
  Age: 73 Year
  Sex: Male
  Weight: 96 kg

DRUGS (4)
  1. CAPECITABINE. [Suspect]
     Active Substance: CAPECITABINE
     Indication: GASTRIC CANCER
     Dosage: MOST RECENT ADMINISTRATION - 16/SEP/2014
     Route: 048
     Dates: start: 20121101
  2. CISPLATIN. [Suspect]
     Active Substance: CISPLATIN
     Indication: GASTRIC CANCER
     Dosage: MOST RECENT ADMINISTRATION - 16/SEP/2014
     Route: 042
     Dates: start: 20121101
  3. EPIRUBICIN [Suspect]
     Active Substance: EPIRUBICIN
     Indication: GASTRIC CANCER
     Dosage: MOST RECENT ADMINISTRATION - 16/SEP/2014
     Route: 042
     Dates: start: 20121101
  4. BEVACIZUMAB [Suspect]
     Active Substance: BEVACIZUMAB
     Indication: GASTRIC CANCER
     Dosage: MOST RECENT ADMINISTRATION - 16/SEP/2014
     Route: 042
     Dates: start: 20121101

REACTIONS (1)
  - Atrial fibrillation [Recovered/Resolved]

NARRATIVE: CASE EVENT DATE: 20130225
